FAERS Safety Report 18385595 (Version 1)
Quarter: 2020Q4

REPORT INFORMATION
  Report Type: Spontaneous
  Country: US (occurrence: US)
  Receive Date: 20201015
  Receipt Date: 20201015
  Transmission Date: 20210114
  Serious: No
  Sender: FDA-Public Use
  Company Number: US-BEH-2020123365

PATIENT
  Sex: Female

DRUGS (1)
  1. HIZENTRA [Suspect]
     Active Substance: HUMAN IMMUNOGLOBULIN G
     Indication: CHRONIC INFLAMMATORY DEMYELINATING POLYRADICULONEUROPATHY
     Dosage: 15 GRAM, QW
     Route: 058
     Dates: start: 20200724

REACTIONS (4)
  - Therapy cessation [Unknown]
  - Memory impairment [Unknown]
  - Malaise [Unknown]
  - No adverse event [Unknown]
